FAERS Safety Report 13875944 (Version 3)
Quarter: 2017Q4

REPORT INFORMATION
  Report Type: Report from Study
  Country: None (occurrence: US)
  Receive Date: 20170817
  Receipt Date: 20171115
  Transmission Date: 20180320
  Serious: Yes (Hospitalization, Other)
  Sender: FDA-Public Use
  Company Number: US-ABBVIE-17K-163-2071998-00

PATIENT
  Age: 56 Year
  Sex: Female
  Weight: 69.01 kg

DRUGS (1)
  1. HUMIRA [Suspect]
     Active Substance: ADALIMUMAB
     Indication: PSORIATIC ARTHROPATHY
     Route: 058
     Dates: start: 2016, end: 201707

REACTIONS (11)
  - Pneumonia [Recovering/Resolving]
  - Electrolyte imbalance [Recovered/Resolved]
  - Sleep apnoea syndrome [Unknown]
  - Staphylococcal infection [Unknown]
  - Blood sodium decreased [Recovered/Resolved]
  - Pneumonia [Recovered/Resolved]
  - Meningitis [Recovered/Resolved]
  - Loss of consciousness [Recovered/Resolved]
  - Narcolepsy [Not Recovered/Not Resolved]
  - Meningitis bacterial [Recovering/Resolving]
  - Insomnia [Not Recovered/Not Resolved]

NARRATIVE: CASE EVENT DATE: 2017
